FAERS Safety Report 14918413 (Version 1)
Quarter: 2018Q2

REPORT INFORMATION
  Report Type: Spontaneous
  Country: US (occurrence: US)
  Receive Date: 20180521
  Receipt Date: 20180521
  Transmission Date: 20180711
  Serious: No
  Sender: FDA-Public Use
  Company Number: US-BION-006277

PATIENT
  Age: 67 Year
  Sex: Female
  Weight: 122.73 kg

DRUGS (1)
  1. MOTRIN IB [Suspect]
     Active Substance: IBUPROFEN
     Indication: TENDONITIS
     Dosage: STRENGTH: 200 MG
     Route: 048
     Dates: start: 20170428

REACTIONS (1)
  - Drug ineffective [Not Recovered/Not Resolved]
